FAERS Safety Report 7227944-X (Version None)
Quarter: 2011Q1

REPORT INFORMATION
  Report Type: 
  Country: None (occurrence: None)
  Receive Date: 20110114
  Receipt Date: 20110106
  Transmission Date: 20110831
  Serious: Yes (Hospitalization)
  Sender: FDA-Public Use
  Company Number: IE-MEDIMMUNE-MEDI-0012183

PATIENT
  Sex: Male
  Weight: 6.02 kg

DRUGS (8)
  1. LANSOPRAZOLE [Concomitant]
  2. KAPSOVIT [Concomitant]
  3. LACTULOSE [Concomitant]
  4. SYNAGIS [Suspect]
     Route: 030
     Dates: start: 20101018, end: 20101018
  5. HYOSCINE HBR HYT [Concomitant]
  6. BACLOFEN [Concomitant]
  7. GLYCOPYRRONIUM [Concomitant]
  8. DIAZEPAM [Concomitant]

REACTIONS (1)
  - PNEUMONIA [None]
